FAERS Safety Report 9365677 (Version 2)
Quarter: 2013Q3

REPORT INFORMATION
  Report Type: Spontaneous
  Country: US (occurrence: US)
  Receive Date: 20130625
  Receipt Date: 20130712
  Transmission Date: 20140515
  Serious: Yes (Other)
  Sender: FDA-Public Use
  Company Number: US-BAYER-2013-076687

PATIENT
  Age: 21 Year
  Sex: Female
  Weight: 102.49 kg

DRUGS (1)
  1. MIRENA [Suspect]
     Indication: CONTRACEPTION
     Dosage: 20 MCG/24HR, CONT
     Route: 015
     Dates: start: 20121008, end: 20130701

REACTIONS (5)
  - Device dislocation [Recovering/Resolving]
  - Influenza [None]
  - Abdominal pain [None]
  - Nausea [None]
  - Vomiting [None]
